FAERS Safety Report 8513547-3 (Version None)
Quarter: 2012Q3

REPORT INFORMATION
  Report Type: 
  Country: None (occurrence: None)
  Receive Date: 20120717
  Receipt Date: 20120709
  Transmission Date: 20120928
  Serious: No
  Sender: FDA-Public Use
  Company Number: US-BIOGENIDEC-2012BI024532

PATIENT
  Age: 58 Year
  Sex: Female

DRUGS (6)
  1. INSULIN [Concomitant]
     Indication: DIABETES MELLITUS
  2. METFORMIN HYDROCHLORIDE [Concomitant]
     Indication: DIABETES MELLITUS
  3. CYMBALTA [Concomitant]
     Indication: NEUROPATHY PERIPHERAL
  4. AVONEX [Suspect]
     Indication: MULTIPLE SCLEROSIS
     Route: 030
     Dates: start: 20041210
  5. NEURONTIN [Concomitant]
     Indication: NEUROPATHY PERIPHERAL
  6. LYRICA [Concomitant]
     Indication: NEUROPATHY PERIPHERAL

REACTIONS (1)
  - NEUROPATHY PERIPHERAL [None]
